FAERS Safety Report 5718579-6 (Version None)
Quarter: 2008Q2

REPORT INFORMATION
  Report Type: 
  Country: None (occurrence: None)
  Receive Date: 20080425
  Receipt Date: 20080416
  Transmission Date: 20081010
  Serious: Yes (Hospitalization)
  Sender: FDA-Public Use
  Company Number: CA-ABBOTT-95P-028-0062328-00

PATIENT
  Age: 66 Year
  Sex: Male
  Weight: 64 kg

DRUGS (8)
  1. ERYTHROMYCIN [Suspect]
     Indication: IMMUNOSUPPRESSANT DRUG LEVEL DECREASED
     Route: 048
  2. VINBLASTINE SULFATE [Interacting]
     Indication: CHEMOTHERAPY
     Route: 042
  3. CYCLOSPORINE [Concomitant]
     Indication: MULTIPLE-DRUG RESISTANCE
     Route: 048
  4. CYCLOSPORINE [Concomitant]
     Indication: PROPHYLAXIS
  5. SULCRATE [Concomitant]
     Indication: DRUG USE FOR UNKNOWN INDICATION
  6. SURFAK [Concomitant]
     Indication: DRUG USE FOR UNKNOWN INDICATION
     Dosage: 100-200 MG DAILY PRN FOR FIRST 5 DAYS
  7. ZOFRAN [Concomitant]
     Indication: DRUG USE FOR UNKNOWN INDICATION
     Dosage: PRN FOR 5 DAYS
  8. PROCHLORPERAZINE [Concomitant]
     Indication: DRUG USE FOR UNKNOWN INDICATION
     Dosage: 10 MG UP TO FOUR TIMES DAILY

REACTIONS (6)
  - CONSTIPATION [None]
  - DRUG INTERACTION [None]
  - DRUG TOXICITY [None]
  - NEUTROPENIA [None]
  - PAIN [None]
  - PYREXIA [None]
